FAERS Safety Report 16080853 (Version 1)
Quarter: 2019Q1

REPORT INFORMATION
  Report Type: Spontaneous
  Country: US (occurrence: US)
  Receive Date: 20190316
  Receipt Date: 20190316
  Transmission Date: 20190418
  Serious: No
  Sender: FDA-Public Use
  Company Number: US-SHIRE-US201908691

PATIENT
  Sex: Female

DRUGS (1)
  1. TAKHZYRO [Suspect]
     Active Substance: LANADELUMAB-FLYO
     Indication: HEREDITARY ANGIOEDEMA
     Dosage: 2 MILLILITER, 1X/2WKS
     Route: 065
     Dates: start: 20190223

REACTIONS (4)
  - Gingival pain [Unknown]
  - Genital erythema [Unknown]
  - Mouth ulceration [Unknown]
  - Genital pain [Unknown]
